FAERS Safety Report 16161341 (Version 1)
Quarter: 2019Q2

REPORT INFORMATION
  Report Type: Spontaneous
  Country: TR (occurrence: TR)
  Receive Date: 20190405
  Receipt Date: 20190405
  Transmission Date: 20190711
  Serious: Yes (Disabling, Other)
  Sender: FDA-Public Use
  Company Number: TR-TEVA-2019-TR-1032566

PATIENT
  Age: 30 Year
  Sex: Female

DRUGS (1)
  1. TRIAMCINOLONE [Suspect]
     Active Substance: TRIAMCINOLONE
     Indication: ALOPECIA AREATA
     Route: 058

REACTIONS (5)
  - Retinal artery embolism [Recovering/Resolving]
  - Retinal artery occlusion [Recovering/Resolving]
  - Retinal vascular occlusion [Recovering/Resolving]
  - Retinal haemorrhage [Recovered/Resolved]
  - Blindness unilateral [Recovering/Resolving]
